FAERS Safety Report 4869007-4 (Version None)
Quarter: 2005Q4

REPORT INFORMATION
  Report Type: 
  Country: None (occurrence: None)
  Receive Date: 20051229
  Receipt Date: 20051222
  Transmission Date: 20060501
  Serious: Yes (Hospitalization)
  Sender: FDA-Public Use
  Company Number: AU-MERCK-0512AUS00413

PATIENT
  Age: 66 Year
  Sex: Male

DRUGS (3)
  1. FOSAMAX [Suspect]
     Indication: OSTEOPOROSIS
     Route: 048
     Dates: start: 20020101
  2. CELECOXIB [Concomitant]
     Indication: ARTHRITIS
     Route: 065
     Dates: start: 20020101
  3. PRIMIDONE [Concomitant]
     Indication: EPILEPSY
     Route: 048

REACTIONS (4)
  - BONE DENSITY DECREASED [None]
  - HAEMOCHROMATOSIS [None]
  - HEPATIC CIRRHOSIS [None]
  - KNEE ARTHROPLASTY [None]
